FAERS Safety Report 8586471-8 (Version None)
Quarter: 2012Q3

REPORT INFORMATION
  Report Type: 
  Country: None (occurrence: None)
  Receive Date: 20120810
  Receipt Date: 20120802
  Transmission Date: 20120928
  Serious: Yes (Other)
  Sender: FDA-Public Use
  Company Number: US-BRISTOL-MYERS SQUIBB COMPANY-16556342

PATIENT
  Age: 51 Year
  Sex: Female
  Weight: 73 kg

DRUGS (4)
  1. LAMICTAL [Concomitant]
  2. ABILIFY [Suspect]
     Indication: DEPRESSION
  3. LEXAPRO [Concomitant]
  4. ABILIFY [Suspect]
     Indication: SCHIZOPHRENIA

REACTIONS (3)
  - CONVULSION [None]
  - TREMOR [None]
  - DEMENTIA [None]
